FAERS Safety Report 14126703 (Version 1)
Quarter: 2017Q4

REPORT INFORMATION
  Report Type: Report from Study
  Country: US (occurrence: US)
  Receive Date: 20171025
  Receipt Date: 20171025
  Transmission Date: 20180321
  Serious: Yes (Other)
  Sender: FDA-Public Use
  Company Number: US-SHIRE-US201726610

PATIENT

DRUGS (1)
  1. HUMAN NORMAL IMMUNOGLOBULIN; LIQUID [Suspect]
     Active Substance: HUMAN IMMUNOGLOBULIN G
     Indication: PRIMARY IMMUNODEFICIENCY SYNDROME
     Dosage: UNK
     Route: 042
     Dates: start: 201701

REACTIONS (6)
  - Blood immunoglobulin G decreased [Unknown]
  - Impaired gastric emptying [Unknown]
  - Weight decreased [Unknown]
  - Wrist fracture [Unknown]
  - Diarrhoea [Unknown]
  - Asthma [Unknown]
